FAERS Safety Report 5430372-0 (Version None)
Quarter: 2007Q3

REPORT INFORMATION
  Report Type: 
  Country: None (occurrence: None)
  Receive Date: 20070830
  Receipt Date: 20070825
  Transmission Date: 20080115
  Serious: Yes (Hospitalization)
  Sender: FDA-Public Use
  Company Number: US-JNJFOC-20070805440

PATIENT
  Sex: Female

DRUGS (2)
  1. TYLENOL (CAPLET) [Suspect]
  2. TYLENOL (CAPLET) [Suspect]
     Indication: PAIN
     Dosage: 2600 - 4875 MG PER DAY FOR SEVERAL YEARS

REACTIONS (5)
  - HAEMATEMESIS [None]
  - INCORRECT DRUG ADMINISTRATION DURATION [None]
  - INTENTIONAL OVERDOSE [None]
  - LIVER DISORDER [None]
  - PAIN [None]
